FAERS Safety Report 4838118-1 (Version None)
Quarter: 2005Q4

REPORT INFORMATION
  Report Type: 
  Country: None (occurrence: None)
  Receive Date: 20051128
  Receipt Date: 20051021
  Transmission Date: 20060501
  Serious: Yes (Other)
  Sender: FDA-Public Use
  Company Number: 2005CG01760

PATIENT
  Age: 78 Year
  Sex: Female

DRUGS (2)
  1. ARIMIDEX [Suspect]
     Indication: BREAST CANCER
     Route: 048
     Dates: start: 20050401
  2. RADIOTHERAPY TO LEFT BREAST [Concomitant]
     Indication: BREAST CANCER
     Dates: start: 20050101, end: 20050101

REACTIONS (1)
  - LUNG DISORDER [None]
